FAERS Safety Report 23538897 (Version 1)
Quarter: 2024Q1

REPORT INFORMATION
  Report Type: Spontaneous
  Country: CO (occurrence: CO)
  Receive Date: 20240219
  Receipt Date: 20240219
  Transmission Date: 20240410
  Serious: Yes (Hospitalization)
  Sender: FDA-Public Use
  Company Number: CO-SA-SAC20240216000489

PATIENT
  Age: 63 Year
  Sex: Male

DRUGS (1)
  1. PRALUENT [Suspect]
     Active Substance: ALIROCUMAB
     Indication: Type IIa hyperlipidaemia
     Dosage: 75 MG, QOW
     Route: 058

REACTIONS (1)
  - Gastroenteritis [Unknown]

NARRATIVE: CASE EVENT DATE: 20240101
